FAERS Safety Report 21977412 (Version 1)
Quarter: 2023Q1

REPORT INFORMATION
  Report Type: Spontaneous
  Country: NL (occurrence: NL)
  Receive Date: 20230210
  Receipt Date: 20230210
  Transmission Date: 20230418
  Serious: Yes (Other)
  Sender: FDA-Public Use
  Company Number: None

PATIENT
  Sex: Male
  Weight: 77 kg

DRUGS (1)
  1. AMILORIDE HYDROCHLORIDE\HYDROCHLOROTHIAZIDE [Suspect]
     Active Substance: AMILORIDE HYDROCHLORIDE\HYDROCHLOROTHIAZIDE
     Indication: Nephrolithiasis
     Dosage: 5 MILLIGRAM DAILY; FORM STRENGTH : 5/50MG, BRAND NAME NOT SPECIFIED
     Route: 065
     Dates: start: 19920311

REACTIONS (5)
  - Squamous cell carcinoma [Not Recovered/Not Resolved]
  - Basal cell carcinoma [Not Recovered/Not Resolved]
  - Dermatitis [Unknown]
  - Skin atrophy [Unknown]
  - Skin exfoliation [Unknown]
